FAERS Safety Report 6088170-3 (Version None)
Quarter: 2009Q1

REPORT INFORMATION
  Report Type: 
  Country: None (occurrence: None)
  Receive Date: 20090218
  Receipt Date: 20090210
  Transmission Date: 20090719
  Serious: Yes (Death, Other)
  Sender: FDA-Public Use
  Company Number: 2009SP002396

PATIENT
  Age: 54 Year
  Sex: Male

DRUGS (2)
  1. NOXAFIL [Suspect]
     Indication: ANTIFUNGAL PROPHYLAXIS
     Dosage: 200 MG TID
     Dates: start: 20081216, end: 20081227
  2. CASPOFUNGIN [Concomitant]

REACTIONS (5)
  - ACUTE GRAFT VERSUS HOST DISEASE IN INTESTINE [None]
  - CANDIDIASIS [None]
  - DRUG INEFFECTIVE [None]
  - LARGE INTESTINE PERFORATION [None]
  - PULMONARY EMBOLISM [None]
